FAERS Safety Report 12278090 (Version 1)
Quarter: 2016Q2

REPORT INFORMATION
  Report Type: Spontaneous
  Country: US (occurrence: US)
  Receive Date: 20160418
  Receipt Date: 20160418
  Transmission Date: 20160815
  Serious: Yes (Other)
  Sender: FDA-Public Use
  Company Number: US-MYLANLABS-2016M1014896

PATIENT

DRUGS (2)
  1. TEMAZEPAM. [Suspect]
     Active Substance: TEMAZEPAM
     Indication: SLEEP DISORDER
     Dosage: UNK
  2. TEMAZEPAM. [Suspect]
     Active Substance: TEMAZEPAM
     Indication: SEIZURE

REACTIONS (1)
  - Drug ineffective [Unknown]
